FAERS Safety Report 9892392 (Version 4)
Quarter: 2014Q1

REPORT INFORMATION
  Report Type: Spontaneous
  Country: IT (occurrence: IT)
  Receive Date: 20140212
  Receipt Date: 20140319
  Transmission Date: 20141002
  Serious: Yes (Other)
  Sender: FDA-Public Use
  Company Number: IT-PFIZER INC-2014039654

PATIENT
  Age: 91 Year
  Sex: Female

DRUGS (4)
  1. LYRICA [Suspect]
     Indication: NEUROPATHY PERIPHERAL
     Dosage: 225 MG, DAILY
     Route: 048
     Dates: start: 20131024, end: 20131102
  2. PATROL [Concomitant]
     Indication: NEUROPATHY PERIPHERAL
     Dosage: UNK
     Route: 048
     Dates: start: 20131019, end: 20131102
  3. VERSATIS [Concomitant]
     Indication: NEUROPATHY PERIPHERAL
     Route: 062
  4. LORAZEPAM ^AYERST^ [Concomitant]
     Dosage: 2.5 MG IN THE EVENING

REACTIONS (5)
  - Adverse drug reaction [Recovered/Resolved]
  - Hallucinations, mixed [Recovered/Resolved]
  - Euphoric mood [Recovered/Resolved]
  - Staring [Recovered/Resolved]
  - Insomnia [Recovered/Resolved]
